FAERS Safety Report 19072653 (Version 3)
Quarter: 2021Q2

REPORT INFORMATION
  Report Type: Report from Study
  Country: None (occurrence: US)
  Receive Date: 20210330
  Receipt Date: 20210520
  Transmission Date: 20210717
  Serious: Yes (Other)
  Sender: FDA-Public Use
  Company Number: US-ABBVIE-21K-163-3829779-00

PATIENT
  Age: 60 Year
  Sex: Female
  Weight: 86.26 kg

DRUGS (3)
  1. DOXYCYCLINE. [Concomitant]
     Active Substance: DOXYCYCLINE
     Indication: PRODUCT USED FOR UNKNOWN INDICATION
  2. RINVOQ [Suspect]
     Active Substance: UPADACITINIB
     Indication: RHEUMATOID ARTHRITIS
     Route: 048
     Dates: start: 2018, end: 20210329
  3. TYLENOL [Concomitant]
     Active Substance: ACETAMINOPHEN
     Indication: PRODUCT USED FOR UNKNOWN INDICATION

REACTIONS (13)
  - Tooth socket haemorrhage [Recovering/Resolving]
  - Cystitis [Not Recovered/Not Resolved]
  - Procedural pain [Unknown]
  - Toothache [Recovering/Resolving]
  - Balance disorder [Not Recovered/Not Resolved]
  - Post procedural swelling [Unknown]
  - Dizziness [Not Recovered/Not Resolved]
  - Post procedural haemorrhage [Unknown]
  - Fungal infection [Not Recovered/Not Resolved]
  - COVID-19 [Recovering/Resolving]
  - Tooth fracture [Recovering/Resolving]
  - Fibromyalgia [Not Recovered/Not Resolved]
  - Tooth fracture [Unknown]

NARRATIVE: CASE EVENT DATE: 202103
